FAERS Safety Report 7328726-0 (Version None)
Quarter: 2011Q1

REPORT INFORMATION
  Report Type: 
  Country: None (occurrence: None)
  Receive Date: 20110225
  Receipt Date: 20110225
  Transmission Date: 20110831
  Serious: Yes (Hospitalization)
  Sender: FDA-Public Use
  Company Number: None

PATIENT
  Age: 38 Year
  Sex: Male
  Weight: 91 kg

DRUGS (2)
  1. HERBAL MEDICATIONS -SEE [Suspect]
  2. AMOXICILLIN [Suspect]
     Indication: UPPER RESPIRATORY TRACT INFECTION
     Dosage: 500MG TID PO
     Route: 048
     Dates: start: 20100423, end: 20100501

REACTIONS (4)
  - HEPATIC NECROSIS [None]
  - LIVER DISORDER [None]
  - HEPATITIS [None]
  - INTERNATIONAL NORMALISED RATIO INCREASED [None]
